FAERS Safety Report 6756182-X (Version None)
Quarter: 2010Q2

REPORT INFORMATION
  Report Type: 
  Country: None (occurrence: None)
  Receive Date: 20100604
  Receipt Date: 20100526
  Transmission Date: 20101027
  Serious: Yes (Other)
  Sender: FDA-Public Use
  Company Number: PHHY2010JP06852

PATIENT
  Age: 47 Year
  Sex: Male

DRUGS (1)
  1. VOLTAREN [Suspect]
     Indication: HEADACHE
     Dosage: 25-50 MG DAILY
     Route: 048

REACTIONS (3)
  - DRUG DEPENDENCE [None]
  - HYPERLIPIDAEMIA [None]
  - HYPERTENSION [None]
